FAERS Safety Report 9587957 (Version 1)
Quarter: 2013Q4

REPORT INFORMATION
  Report Type: Report from Study
  Country: TW (occurrence: TW)
  Receive Date: 20131003
  Receipt Date: 20131003
  Transmission Date: 20140711
  Serious: No
  Sender: FDA-Public Use
  Company Number: PHHY2012TW120579

PATIENT
  Age: 60 Year
  Sex: Female

DRUGS (19)
  1. AMN107 [Suspect]
  2. ACETAMINOPHEN [Concomitant]
     Indication: PAIN
     Dosage: UNK
     Dates: end: 20110216
  3. ACETAMINOPHEN [Concomitant]
     Indication: PYREXIA
     Dosage: UNK
     Dates: start: 20120516, end: 20120521
  4. CIMETIDINE [Concomitant]
     Indication: PEPTIC ULCER
     Dosage: UNK
     Dates: start: 20100210, end: 20120328
  5. LEVOCETIRIZINE [Concomitant]
     Indication: PRURITUS
     Dosage: UNK
     Dates: start: 20101027, end: 20110907
  6. LEVOCETIRIZINE [Concomitant]
     Indication: RASH
     Dosage: UNK
     Dates: start: 20120328, end: 20120919
  7. MAGNESIUM OXIDE [Concomitant]
     Indication: CONSTIPATION
     Dosage: UNK
     Dates: start: 20080618
  8. METFORMIN [Concomitant]
     Indication: DIABETES MELLITUS
     Dosage: UNK
     Dates: start: 20090624
  9. NEO-CORTISONE [Concomitant]
     Indication: PRURITUS
     Dosage: UNK
     Dates: start: 20081008, end: 20120424
  10. PREDNISOLONE [Concomitant]
     Indication: OSTEOPOROSIS
     Dosage: UNK
     Dates: start: 20101027, end: 20110330
  11. PREDNISOLONE [Concomitant]
     Dosage: UNK
     Dates: start: 20110413
  12. TRAMADOL [Concomitant]
     Indication: PAIN
     Dosage: UNK
     Dates: start: 20100310, end: 20110316
  13. ZOLPIDEM [Concomitant]
     Indication: INSOMNIA
     Dosage: UNK
     Dates: start: 20100602, end: 20110907
  14. IBUPROFEN [Concomitant]
     Indication: PAIN
     Dosage: UNK
     Dates: start: 20110216, end: 20110413
  15. IBUPROFEN [Concomitant]
     Dosage: UNK
     Dates: start: 20110615
  16. ULTRACET [Concomitant]
     Indication: PAIN
     Dosage: UNK
     Dates: start: 20110316, end: 20110608
  17. ULTRACET [Concomitant]
     Indication: PAIN
     Dosage: UNK
     Dates: start: 20120328
  18. CICLOPIROX OLAMINE [Concomitant]
     Indication: RASH
     Dosage: UNK
     Dates: start: 20110413, end: 20110615
  19. ETOFENAMATE [Concomitant]
     Indication: PAIN
     Dosage: UNK
     Dates: start: 20110511, end: 20110615

REACTIONS (1)
  - Cough [Unknown]
